FAERS Safety Report 17519624 (Version 2)
Quarter: 2020Q4

REPORT INFORMATION
  Report Type: Spontaneous
  Country: GB (occurrence: GB)
  Receive Date: 20200310
  Receipt Date: 20201006
  Transmission Date: 20210113
  Serious: Yes (Other)
  Sender: FDA-Public Use
  Company Number: GB-TEVA-2020-GB-1196183

PATIENT
  Age: 27 Year
  Sex: Female

DRUGS (1)
  1. TOBRAMYCIN. [Suspect]
     Active Substance: TOBRAMYCIN
     Dosage: 300 MG

REACTIONS (3)
  - Documented hypersensitivity to administered product [Unknown]
  - Anaphylactic reaction [Recovered/Resolved]
  - Wrong product administered [Unknown]
